FAERS Safety Report 17798183 (Version 3)
Quarter: 2020Q3

REPORT INFORMATION
  Report Type: Report from Study
  Country: US (occurrence: US)
  Receive Date: 20200518
  Receipt Date: 20200727
  Transmission Date: 20201102
  Serious: Yes (Other)
  Sender: FDA-Public Use
  Company Number: US-BAYER-2020-065121

PATIENT
  Age: 89 Year
  Sex: Female

DRUGS (1)
  1. STIVARGA [Suspect]
     Active Substance: REGORAFENIB
     Indication: COLORECTAL CANCER
     Dosage: 40 MG, QD (FOR 3 WEEKS ON AND 1 WEEK OFF)
     Route: 048
     Dates: start: 20200412

REACTIONS (19)
  - Fall [Unknown]
  - Muscle spasms [Unknown]
  - Product use issue [Unknown]
  - Skin fissures [Not Recovered/Not Resolved]
  - Back pain [Not Recovered/Not Resolved]
  - Off label use [None]
  - Sensory disturbance [Unknown]
  - Faecal volume increased [Not Recovered/Not Resolved]
  - Faeces soft [Not Recovered/Not Resolved]
  - Muscle spasms [Not Recovered/Not Resolved]
  - Diarrhoea [Unknown]
  - Alopecia [Unknown]
  - Neuropathy peripheral [Unknown]
  - Fatigue [Not Recovered/Not Resolved]
  - Alopecia [Not Recovered/Not Resolved]
  - Tumour marker increased [Not Recovered/Not Resolved]
  - Product availability issue [Unknown]
  - Feeling cold [Not Recovered/Not Resolved]
  - Product dose omission issue [Unknown]
